FAERS Safety Report 12386122 (Version 3)
Quarter: 2016Q2

REPORT INFORMATION
  Report Type: Spontaneous
  Country: JP (occurrence: JP)
  Receive Date: 20160519
  Receipt Date: 20160608
  Transmission Date: 20160815
  Serious: Yes (Hospitalization)
  Sender: FDA-Public Use
  Company Number: JP-TEVA-2016-JP-001084J

PATIENT
  Age: 79 Year
  Sex: Female

DRUGS (8)
  1. MINOFIT [Concomitant]
     Active Substance: CYSTEINE\GLYCINE\GLYCYRRHIZIN
     Route: 065
     Dates: end: 20160507
  2. INCHINKOTO [Concomitant]
     Active Substance: UNSPECIFIED INGREDIENT
     Route: 065
     Dates: end: 20160507
  3. LIFOROS [Concomitant]
     Active Substance: LACTULOSE
     Route: 065
     Dates: end: 20160507
  4. URSO [Concomitant]
     Active Substance: URSODIOL
     Route: 065
     Dates: end: 20160507
  5. LANSOPRAZOLE OD TABLET 15MG TEVA [Suspect]
     Active Substance: LANSOPRAZOLE
     Indication: POSTOPERATIVE CARE
     Dosage: 15 MILLIGRAM DAILY;
     Route: 048
     Dates: start: 20160330, end: 20160507
  6. CALONAL [Suspect]
     Active Substance: ACETAMINOPHEN
     Indication: PROCEDURAL PAIN
     Dosage: 1800 MILLIGRAM DAILY;
     Route: 048
     Dates: start: 20160330, end: 20160507
  7. AMINOLEBAN [Concomitant]
     Active Substance: AMINO ACIDS
     Route: 065
     Dates: end: 20160507
  8. AMLODIPINE [Concomitant]
     Active Substance: AMLODIPINE BESYLATE
     Indication: HYPERTENSION
     Dosage: 2.5 MILLIGRAM DAILY;
     Route: 048
     Dates: start: 20160408, end: 20160507

REACTIONS (1)
  - Hepatic function abnormal [Recovering/Resolving]

NARRATIVE: CASE EVENT DATE: 20160506
